FAERS Safety Report 10066329 (Version 2)
Quarter: 2014Q2

REPORT INFORMATION
  Report Type: Spontaneous
  Country: IT (occurrence: IT)
  Receive Date: 20140408
  Receipt Date: 20140417
  Transmission Date: 20141212
  Serious: Yes (Other)
  Sender: FDA-Public Use
  Company Number: IT-BAYER-2014-050281

PATIENT
  Age: 66 Year
  Sex: Female

DRUGS (7)
  1. CARDIOASPIRIN [Suspect]
     Dosage: DAILY DOSE 100 MG
     Route: 048
  2. TRIATEC [Interacting]
     Indication: HYPERTENSION
  3. TOPAMAX [Interacting]
  4. EXELON [Interacting]
  5. SEROQUEL [Interacting]
     Dosage: DAILY DOSE 125 MG
  6. CYMBALTA [Interacting]
     Dosage: DAILY DOSE 120 MG
     Route: 048
  7. EBIXA [Interacting]
     Dosage: DAILY DOSE 20 MG
     Route: 048

REACTIONS (17)
  - Convulsion [Unknown]
  - Psychomotor hyperactivity [Unknown]
  - Agnosia [Unknown]
  - Anxiety [Unknown]
  - Convulsion [Unknown]
  - Partial seizures [Unknown]
  - Loss of consciousness [Unknown]
  - Dementia Alzheimer^s type [Unknown]
  - Tonic convulsion [Unknown]
  - Anxiety [Unknown]
  - Agitation [Unknown]
  - Hallucination [Unknown]
  - Psychotic behaviour [Unknown]
  - Clonus [Unknown]
  - Confusional state [Unknown]
  - Dysstasia [Unknown]
  - Drug interaction [Unknown]
